FAERS Safety Report 8717878 (Version 2)
Quarter: 2013Q4

REPORT INFORMATION
  Report Type: Report from Study
  Country: US (occurrence: US)
  Receive Date: 20120810
  Receipt Date: 20131105
  Transmission Date: 20140711
  Serious: Yes (Hospitalization, Other)
  Sender: FDA-Public Use
  Company Number: US-009507513-1208USA004205

PATIENT
  Sex: Female

DRUGS (2)
  1. PEG-INTRON [Suspect]
     Indication: HEPATITIS C
     Dosage: UNK
     Dates: start: 20020104, end: 20021206
  2. REBETOL [Suspect]
     Indication: HEPATITIS C
     Dosage: UNK
     Dates: start: 20020104, end: 20021206

REACTIONS (10)
  - Cholecystectomy [Unknown]
  - Aggression [Unknown]
  - Biliary drainage [Unknown]
  - Pain [Unknown]
  - Memory impairment [Unknown]
  - Respiratory tract congestion [Unknown]
  - Confusional state [Unknown]
  - Depression [Unknown]
  - Hepatitis C [Unknown]
  - Fluid retention [Unknown]
